FAERS Safety Report 8033844-8 (Version None)
Quarter: 2012Q1

REPORT INFORMATION
  Report Type: 
  Country: None (occurrence: None)
  Receive Date: 20120110
  Receipt Date: 20120103
  Transmission Date: 20120608
  Serious: No
  Sender: FDA-Public Use
  Company Number: US-PFIZER INC-2012002169

PATIENT
  Sex: Female

DRUGS (2)
  1. PROCARDIA [Suspect]
     Dosage: UNK
  2. VESICARE [Suspect]
     Indication: HYPERTONIC BLADDER
     Dosage: 5 MG, UNK
     Route: 048
     Dates: start: 20111001, end: 20111101

REACTIONS (2)
  - OEDEMA PERIPHERAL [None]
  - ERYTHEMA [None]
